FAERS Safety Report 15678019 (Version 2)
Quarter: 2019Q3

REPORT INFORMATION
  Report Type: Spontaneous
  Country: FR (occurrence: FR)
  Receive Date: 20181130
  Receipt Date: 20190716
  Transmission Date: 20191004
  Serious: Yes (Hospitalization, Other)
  Sender: FDA-Public Use
  Company Number: FR-AUROBINDO-AUR-APL-2018-057547

PATIENT

DRUGS (1)
  1. TRAMADOL. [Suspect]
     Active Substance: TRAMADOL
     Indication: PRODUCT USED FOR UNKNOWN INDICATION
     Dosage: UNK
     Route: 065

REACTIONS (5)
  - Miosis [Recovered/Resolved]
  - Accidental exposure to product by child [Recovered/Resolved]
  - Coma scale abnormal [Recovered/Resolved]
  - Altered state of consciousness [Recovered/Resolved]
  - Hypoventilation [Recovered/Resolved]
